FAERS Safety Report 4432837-7 (Version None)
Quarter: 2004Q3

REPORT INFORMATION
  Report Type: 
  Country: None (occurrence: None)
  Receive Date: 20040823
  Receipt Date: 20040806
  Transmission Date: 20050211
  Serious: Yes (Hospitalization)
  Sender: FDA-Public Use
  Company Number: 04H-028-0269844-00

PATIENT
  Age: 90 Year
  Sex: Female
  Weight: 57 kg

DRUGS (12)
  1. HEPARIN SODIUM [Suspect]
     Indication: ANTICOAGULANT THERAPY
     Dosage: 5000 IU, BID, SUBCUTANEOUS 12 HOUR POSTOP
     Route: 058
  2. MORPHINE SULFATE INJ [Suspect]
     Indication: ANALGESIC EFFECT
     Dosage: 0.05 MG/ML, INFUSING AT 5-7 ML/HR, EPIDURAL
     Route: 008
  3. BUPIVACAINE [Suspect]
     Indication: ANALGESIC EFFECT
     Dosage: 0.1%, 5-7 ML/HR, EPIDURAL POSTOP
     Route: 008
  4. RANITIDINE [Concomitant]
  5. LIDOCAINE [Concomitant]
  6. DESFLURANE [Concomitant]
  7. NITROUS OXIDE [Concomitant]
  8. FENTANYL [Concomitant]
  9. MORPHINE [Concomitant]
  10. BUPIVACAINE [Concomitant]
  11. CEFAZOLIN [Concomitant]
  12. METRONIDAZOLE [Concomitant]

REACTIONS (6)
  - ASTHENIA [None]
  - BLOODY DISCHARGE [None]
  - CATHETER RELATED COMPLICATION [None]
  - EXTRADURAL HAEMATOMA [None]
  - PARAESTHESIA [None]
  - POST PROCEDURAL COMPLICATION [None]
